FAERS Safety Report 20090466 (Version 1)
Quarter: 2021Q4

REPORT INFORMATION
  Report Type: Spontaneous
  Country: US (occurrence: None)
  Receive Date: 20211118
  Receipt Date: 20211118
  Transmission Date: 20220303
  Serious: Yes (Other)
  Sender: FDA-Public Use
  Company Number: None

PATIENT
  Age: 31 Year
  Sex: Female
  Weight: 59.4 kg

DRUGS (2)
  1. ODOR EATERS MEDICATED FOOT POWDER [Suspect]
     Active Substance: MENTHOL
     Indication: Skin odour abnormal
     Dosage: OTHER QUANTITY : 1 SPRAY(S);?FREQUENCY : DAILY;?OTHER ROUTE : SPRAY;?
     Route: 050
  2. PRE-NATAL VITAMINS [Concomitant]

REACTIONS (3)
  - Pruritus [None]
  - Rash erythematous [None]
  - Recalled product administered [None]

NARRATIVE: CASE EVENT DATE: 20211111
